FAERS Safety Report 13829418 (Version 4)
Quarter: 2017Q4

REPORT INFORMATION
  Report Type: Spontaneous
  Country: JP (occurrence: JP)
  Receive Date: 20170803
  Receipt Date: 20171102
  Transmission Date: 20180320
  Serious: Yes (Hospitalization, Other)
  Sender: FDA-Public Use
  Company Number: JP-GLAXOSMITHKLINE-JP2017JPN117134

PATIENT
  Age: 1 Year
  Sex: Female
  Weight: 10 kg

DRUGS (9)
  1. LAMICTAL [Suspect]
     Active Substance: LAMOTRIGINE
     Dosage: 16 MG, 1D
     Route: 048
  2. TEGRETOL [Suspect]
     Active Substance: CARBAMAZEPINE
     Dosage: 100 MG, BID
     Route: 048
     Dates: start: 20170610
  3. TEGRETOL [Suspect]
     Active Substance: CARBAMAZEPINE
     Dosage: 100 MG, 1D
     Dates: start: 20170731, end: 20170803
  4. LAMICTAL [Suspect]
     Active Substance: LAMOTRIGINE
     Dosage: 12 MG, 1D
     Route: 048
  5. LAMICTAL [Suspect]
     Active Substance: LAMOTRIGINE
     Indication: FOCAL DYSCOGNITIVE SEIZURES
     Dosage: 6 MG, BID
     Route: 048
     Dates: start: 20170706, end: 20170713
  6. LAMICTAL [Suspect]
     Active Substance: LAMOTRIGINE
     Dosage: 14 MG, 1D
     Route: 048
  7. LAMICTAL [Suspect]
     Active Substance: LAMOTRIGINE
     Indication: EPILEPSY
     Dosage: 3 MG, BID
     Route: 048
     Dates: start: 20170624, end: 20170705
  8. LAMICTAL [Suspect]
     Active Substance: LAMOTRIGINE
     Dosage: 3 MG, BID
     Route: 048
     Dates: start: 20170714, end: 20170724
  9. TEGRETOL [Suspect]
     Active Substance: CARBAMAZEPINE
     Indication: FOCAL DYSCOGNITIVE SEIZURES
     Dosage: 75 MG, BID
     Route: 048
     Dates: start: 20170511

REACTIONS (8)
  - Aphasia [Recovering/Resolving]
  - Clonic convulsion [Recovered/Resolved]
  - Sleep terror [Recovered/Resolved]
  - Muscle twitching [Recovered/Resolved]
  - Atonic seizures [Recovering/Resolving]
  - Psychomotor hyperactivity [Recovered/Resolved]
  - Loss of consciousness [Recovering/Resolving]
  - Eye movement disorder [Unknown]

NARRATIVE: CASE EVENT DATE: 20170707
